FAERS Safety Report 4294647-3 (Version None)
Quarter: 2004Q1

REPORT INFORMATION
  Report Type: 
  Country: None (occurrence: None)
  Receive Date: 20040211
  Receipt Date: 20040123
  Transmission Date: 20041129
  Serious: Yes (Death)
  Sender: FDA-Public Use
  Company Number: DE_040112854

PATIENT
  Sex: Male

DRUGS (4)
  1. CIALIS [Suspect]
  2. ZOLPIDEM [Concomitant]
  3. BARBITURATES [Concomitant]
  4. ALCOHOL [Concomitant]

REACTIONS (2)
  - ALCOHOL POISONING [None]
  - MULTIPLE DRUG OVERDOSE [None]
